FAERS Safety Report 6024181-1 (Version None)
Quarter: 2008Q4

REPORT INFORMATION
  Report Type: 
  Country: None (occurrence: None)
  Receive Date: 20081224
  Receipt Date: 20081210
  Transmission Date: 20090506
  Serious: Yes (Death, Hospitalization)
  Sender: FDA-Public Use
  Company Number: KV200801114

PATIENT
  Age: 84 Year
  Sex: Male
  Weight: 72.6 kg

DRUGS (6)
  1. ISOSORBIDE MONONITRATE [Suspect]
     Indication: CARDIAC DISORDER
     Dosage: 60 MG (2 TABLETS QD), ORAL
     Route: 048
     Dates: start: 20080401, end: 20080825
  2. ATENOLOL [Concomitant]
  3. LASIX [Concomitant]
  4. FUROSEMIDE [Concomitant]
  5. COUMADIN [Concomitant]
  6. PACERONE 9AMIODARONE HYDROCHLORIDE) [Concomitant]

REACTIONS (7)
  - ACUTE MYOCARDIAL INFARCTION [None]
  - AORTIC STENOSIS [None]
  - CARDIAC FAILURE CONGESTIVE [None]
  - CORONARY ARTERY DISEASE [None]
  - JOINT SWELLING [None]
  - PRODUCT QUALITY ISSUE [None]
  - RENAL FAILURE [None]
